FAERS Safety Report 21549809 (Version 1)
Quarter: 2022Q4

REPORT INFORMATION
  Report Type: Spontaneous
  Country: LU (occurrence: LU)
  Receive Date: 20221103
  Receipt Date: 20221103
  Transmission Date: 20230113
  Serious: Yes (Life-Threatening)
  Sender: FDA-Public Use
  Company Number: None

PATIENT
  Age: 27 Year
  Sex: Female
  Weight: 103 kg

DRUGS (17)
  1. LINEZOLID [Suspect]
     Active Substance: LINEZOLID
     Indication: Septic shock
     Dosage: 600 MG, EVERY 12 HOURS
     Route: 042
     Dates: start: 20220925, end: 20221007
  2. CEFTRIAXONE [Suspect]
     Active Substance: CEFTRIAXONE
     Indication: Sepsis
     Dosage: 2 G, 1X/DAY
     Dates: start: 20220929, end: 20221001
  3. LEVOPHED [Concomitant]
     Active Substance: NOREPINEPHRINE BITARTRATE
     Indication: Hypotension
     Dosage: 0.14 ?G/KG/MIN AND ADJUSTMENT
     Route: 042
     Dates: start: 20220925, end: 20221009
  4. VITAMIN B6 [Concomitant]
     Active Substance: PYRIDOXINE HYDROCHLORIDE
     Dosage: 100 MG, 1X/DAY
     Route: 042
  5. RIFAXIMIN [Concomitant]
     Active Substance: RIFAXIMIN
     Indication: Encephalopathy
     Dosage: 550 MG,  EVERY 12 HOURS
     Route: 048
     Dates: start: 20220926
  6. EUTHYROX [Concomitant]
     Active Substance: LEVOTHYROXINE SODIUM
     Dosage: 100 UG
     Route: 048
  7. FUROSEMIDE [Concomitant]
     Active Substance: FUROSEMIDE
     Dosage: UNK, AS NEEDED
     Route: 042
  8. ACETYLCYSTEINE [Concomitant]
     Active Substance: ACETYLCYSTEINE
     Dosage: 300 MG, EVERY 6 HOURS
  9. MEROPENEM [Concomitant]
     Active Substance: MEROPENEM
     Dosage: 2 G, FREQ:12 H;TWICE A DAY THEN 3 TIMES A DAY
     Route: 042
  10. HEPA-MERZ [ORNITHINE ASPARTATE] [Concomitant]
     Indication: Encephalopathy
     Dosage: 5 G; FREQ: 12H
     Route: 048
     Dates: start: 20220926
  11. ACTRAPID [Concomitant]
     Active Substance: INSULIN HUMAN
     Dosage: UNK
     Dates: end: 20221009
  12. ENOXAPARIN SODIUM [Concomitant]
     Active Substance: ENOXAPARIN SODIUM
     Indication: Thrombosis prophylaxis
     Dosage: 40 MG, 1X/DAY
  13. LACTULOSE [Concomitant]
     Active Substance: LACTULOSE
     Indication: Encephalopathy
     Dosage: 60 ML; FREQ: 8H
     Route: 048
     Dates: start: 20220926, end: 20221007
  14. ESOMEPRAZOLE MAGNESIUM [Concomitant]
     Active Substance: ESOMEPRAZOLE MAGNESIUM
     Dosage: UNK
     Route: 042
  15. VITAMIN B1 [Concomitant]
     Active Substance: THIAMINE HYDROCHLORIDE
     Dosage: 200 MG; FREQ: 12H
     Route: 042
  16. SOLU-CORTEF [Concomitant]
     Active Substance: HYDROCORTISONE SODIUM SUCCINATE
     Dosage: 50 MG; FREQ: 6H
     Route: 042
     Dates: start: 20220925, end: 20221003
  17. L-CARN [Concomitant]
     Dosage: 2 G; FREQ 8H
     Dates: start: 20220925

REACTIONS (1)
  - Thrombocytopenia [Recovered/Resolved]

NARRATIVE: CASE EVENT DATE: 20220930
